FAERS Safety Report 11159783 (Version 2)
Quarter: 2015Q3

REPORT INFORMATION
  Report Type: Spontaneous
  Country: US (occurrence: US)
  Receive Date: 20150603
  Receipt Date: 20150928
  Transmission Date: 20151125
  Serious: No
  Sender: FDA-Public Use
  Company Number: US-GLAXOSMITHKLINE-US2015074005

PATIENT
  Age: 60 Year
  Sex: Female

DRUGS (1)
  1. BACTROBAN [Suspect]
     Active Substance: MUPIROCIN\MUPIROCIN CALCIUM
     Indication: LACERATION
     Dosage: UNK, TID
     Route: 061

REACTIONS (4)
  - Application site pruritus [Recovering/Resolving]
  - Product quality issue [Unknown]
  - Application site pain [Recovering/Resolving]
  - Application site erythema [Recovering/Resolving]

NARRATIVE: CASE EVENT DATE: 20150529
